FAERS Safety Report 5937919-6 (Version None)
Quarter: 2008Q4

REPORT INFORMATION
  Report Type: 
  Country: None (occurrence: None)
  Receive Date: 20081031
  Receipt Date: 20081020
  Transmission Date: 20090506
  Serious: Yes (Other)
  Sender: FDA-Public Use
  Company Number: US-PFIZER INC-2007075206

PATIENT
  Sex: Female
  Weight: 59 kg

DRUGS (5)
  1. CHANTIX [Suspect]
     Indication: SMOKING CESSATION THERAPY
     Route: 048
     Dates: start: 20071101
  2. OXYCODONE HYDROCHLORIDE W/PARACETAMOL [Concomitant]
  3. CITALOPRAM [Concomitant]
  4. EFFEXOR [Concomitant]
  5. NEURONTIN [Concomitant]

REACTIONS (8)
  - EMOTIONAL DISTRESS [None]
  - FATIGUE [None]
  - INCORRECT DOSE ADMINISTERED [None]
  - MALAISE [None]
  - MEDICATION ERROR [None]
  - MOBILITY DECREASED [None]
  - SOMNOLENCE [None]
  - WITHDRAWAL SYNDROME [None]
